FAERS Safety Report 6622068-4 (Version None)
Quarter: 2010Q1

REPORT INFORMATION
  Report Type: 
  Country: None (occurrence: None)
  Receive Date: 20100304
  Receipt Date: 20100224
  Transmission Date: 20100710
  Serious: Yes (Other)
  Sender: FDA-Public Use
  Company Number: 2010SP012197

PATIENT
  Sex: Female

DRUGS (4)
  1. REMERON [Suspect]
     Dosage: 15 MG; PO
     Route: 048
     Dates: start: 20091212, end: 20091225
  2. HALCION [Concomitant]
  3. ZOLOFT [Concomitant]
  4. SOLANAX [Concomitant]

REACTIONS (1)
  - EPILEPSY [None]
